FAERS Safety Report 8450635 (Version 4)
Quarter: 2012Q4

REPORT INFORMATION
  Report Type: Report from Study
  Country: CA (occurrence: CA)
  Receive Date: 20120309
  Receipt Date: 20120919
  Transmission Date: 20130627
  Serious: Yes (Hospitalization)
  Sender: FDA-Public Use
  Company Number: CA-ABBOTT-12P-028-0913103-00

PATIENT
  Age: 64 Year
  Sex: Female

DRUGS (1)
  1. HUMIRA 40 MG/ 0.8 ML PRE-FILLED SYRINGE [Suspect]
     Indication: RHEUMATOID ARTHRITIS
     Route: 058
     Dates: start: 20120110, end: 20120221

REACTIONS (1)
  - Rheumatoid arthritis [Not Recovered/Not Resolved]
